FAERS Safety Report 15389654 (Version 2)
Quarter: 2018Q4

REPORT INFORMATION
  Report Type: Spontaneous
  Country: SE (occurrence: SE)
  Receive Date: 20180917
  Receipt Date: 20180919
  Transmission Date: 20190204
  Serious: Yes (Death, Hospitalization)
  Sender: FDA-Public Use
  Company Number: SE-TEVA-2018-SE-954852

PATIENT
  Age: 61 Year
  Sex: Male

DRUGS (9)
  1. MABTHERA [Suspect]
     Active Substance: RITUXIMAB
     Indication: B-CELL LYMPHOMA
     Route: 042
     Dates: start: 20120103, end: 20120103
  2. HYDROXYDAUNORUBICIN [Suspect]
     Active Substance: DOXORUBICIN
     Indication: LYMPHOMA
     Route: 042
     Dates: start: 20120103, end: 20120103
  3. ONCOVIN [Suspect]
     Active Substance: VINCRISTINE SULFATE
     Indication: LYMPHOMA
     Route: 042
     Dates: start: 20120103, end: 20120312
  4. DELTISON [Concomitant]
     Active Substance: PREDNISONE
     Indication: LYMPHOMA
     Route: 065
     Dates: start: 20120103, end: 20120130
  5. CYKLOFOSFAMID [Suspect]
     Active Substance: CYCLOPHOSPHAMIDE
     Indication: DIFFUSE LARGE B-CELL LYMPHOMA
     Route: 042
     Dates: start: 20120103, end: 20120130
  6. METHOTREXATE. [Concomitant]
     Active Substance: METHOTREXATE
     Indication: LYMPHOMA
     Route: 042
     Dates: start: 20120103, end: 20120103
  7. DOXORUBICIN [Suspect]
     Active Substance: DOXORUBICIN
     Indication: DIFFUSE LARGE B-CELL LYMPHOMA
     Route: 042
     Dates: start: 20120103, end: 20120130
  8. CYKLOFOSFAMID ORION [Suspect]
     Active Substance: CYCLOPHOSPHAMIDE
     Indication: LYMPHOMA
     Route: 042
     Dates: start: 20120103, end: 20120103
  9. ZEFFIX [Concomitant]
     Active Substance: LAMIVUDINE
     Indication: HEPATITIS B
     Route: 048
     Dates: start: 20111227, end: 20120302

REACTIONS (3)
  - Intentional product use issue [Fatal]
  - Progressive multifocal leukoencephalopathy [Fatal]
  - Off label use [Fatal]

NARRATIVE: CASE EVENT DATE: 20120116
